FAERS Safety Report 4396938-4 (Version None)
Quarter: 2004Q3

REPORT INFORMATION
  Report Type: 
  Country: None (occurrence: None)
  Receive Date: 20040709
  Receipt Date: 20040624
  Transmission Date: 20050211
  Serious: Yes (Other)
  Sender: FDA-Public Use
  Company Number: 206455

PATIENT
  Age: 47 Year
  Sex: Female
  Weight: 55 kg

DRUGS (2)
  1. HERCEPTIN [Suspect]
     Indication: BREAST CANCER METASTATIC
     Dosage: 110 MG, INTRAVENOUS
     Route: 042
     Dates: start: 20040426
  2. TAXOTERE [Suspect]
     Indication: BREAST CANCER METASTATIC
     Dosage: INTRAVENOUS
     Route: 042
     Dates: start: 20040426

REACTIONS (4)
  - CHORIORETINAL DISORDER [None]
  - METASTASES TO EYE [None]
  - RETINAL DETACHMENT [None]
  - RETINAL HAEMORRHAGE [None]
